FAERS Safety Report 15190629 (Version 1)
Quarter: 2018Q3

REPORT INFORMATION
  Report Type: Spontaneous
  Country: DE (occurrence: DE)
  Receive Date: 20180724
  Receipt Date: 20180724
  Transmission Date: 20181010
  Serious: Yes (Other)
  Sender: FDA-Public Use
  Company Number: DE-GLAXOSMITHKLINE-DE2018GSK092297

PATIENT
  Sex: Female

DRUGS (1)
  1. FENISTIL UNKNOWN [Suspect]
     Active Substance: DIMETHINDENE
     Indication: PRODUCT USED FOR UNKNOWN INDICATION
     Dosage: UNK
     Dates: start: 2012, end: 2018

REACTIONS (4)
  - Joint stiffness [Unknown]
  - Arthritis [Unknown]
  - Psoriatic arthropathy [Unknown]
  - Dizziness [Recovering/Resolving]
